FAERS Safety Report 21289595 (Version 1)
Quarter: 2022Q3

REPORT INFORMATION
  Report Type: Spontaneous
  Country: BR (occurrence: None)
  Receive Date: 20220902
  Receipt Date: 20220902
  Transmission Date: 20221027
  Serious: Yes (Hospitalization, Other)
  Sender: FDA-Public Use
  Company Number: BR-Merck Healthcare KGaA-9346759

PATIENT
  Sex: Female

DRUGS (15)
  1. LEVOTHYROXINE [Suspect]
     Active Substance: LEVOTHYROXINE
     Indication: Lung neoplasm malignant
  2. LEVOTHYROXINE [Suspect]
     Active Substance: LEVOTHYROXINE
     Indication: Adenocarcinoma
  3. XALKORI [Suspect]
     Active Substance: CRIZOTINIB
     Indication: Lung neoplasm malignant
     Dosage: FAB: 11 MAR 2021, C 60 CAPS
     Dates: start: 202202
  4. XALKORI [Suspect]
     Active Substance: CRIZOTINIB
     Indication: Adenocarcinoma
     Dosage: 1 TABLET  DAY FOR ONE WEEK, AND IN THE OTHER WEEK, 2 TABLETS A DAY
  5. HERBALS [Suspect]
     Active Substance: HERBALS
     Indication: Product used for unknown indication
  6. MIRTAZAPINE [Suspect]
     Active Substance: MIRTAZAPINE
     Indication: Insomnia
  7. ATORVASTATIN [Concomitant]
     Active Substance: ATORVASTATIN
     Indication: Blood cholesterol increased
  8. FUROSEMIDE [Concomitant]
     Active Substance: FUROSEMIDE
     Indication: Diuretic therapy
  9. NYSTATIN [Concomitant]
     Active Substance: NYSTATIN
     Indication: Product used for unknown indication
     Dosage: RINSE AND THEN SWALLOW
     Route: 048
  10. PANTOPRAZOLE [Concomitant]
     Active Substance: PANTOPRAZOLE
     Indication: Gastrointestinal disorder
  11. XARELTO [Concomitant]
     Active Substance: RIVAROXABAN
     Indication: Pulmonary embolism
  12. XARELTO [Concomitant]
     Active Substance: RIVAROXABAN
     Indication: Thrombosis prophylaxis
  13. ESCITALOPRAM [Concomitant]
     Active Substance: ESCITALOPRAM OXALATE
     Indication: Insomnia
  14. ESCITALOPRAM [Concomitant]
     Active Substance: ESCITALOPRAM OXALATE
     Indication: Anxiety
  15. DILTIAZEM [Concomitant]
     Active Substance: DILTIAZEM

REACTIONS (19)
  - Oesophagitis [Unknown]
  - Oropharyngeal candidiasis [Unknown]
  - Odynophagia [Unknown]
  - Hospitalisation [Unknown]
  - Blood pressure fluctuation [Unknown]
  - Nausea [Unknown]
  - Constipation [Unknown]
  - Dyspepsia [Unknown]
  - Ageusia [Unknown]
  - Hypophagia [Unknown]
  - Nightmare [Unknown]
  - Somnolence [Unknown]
  - Hyperchlorhydria [Unknown]
  - Diarrhoea [Recovered/Resolved]
  - Middle insomnia [Unknown]
  - Insomnia [Unknown]
  - Agitation [Unknown]
  - Weight decreased [Unknown]
  - Off label use [Unknown]

NARRATIVE: CASE EVENT DATE: 20220505
